FAERS Safety Report 20683622 (Version 1)
Quarter: 2022Q2

REPORT INFORMATION
  Report Type: Spontaneous
  Country: US (occurrence: None)
  Receive Date: 20220406
  Receipt Date: 20220406
  Transmission Date: 20220721
  Serious: No
  Sender: FDA-Public Use
  Company Number: None

PATIENT
  Age: 67 Year
  Sex: Female
  Weight: 83.25 kg

DRUGS (3)
  1. TIXAGEVIMAB [Suspect]
     Active Substance: TIXAGEVIMAB
     Indication: Prophylaxis
     Dosage: OTHER FREQUENCY : ONCE;?
     Route: 030
  2. CILGAVIMAB [Suspect]
     Active Substance: CILGAVIMAB
     Dosage: OTHER FREQUENCY : ONCE;?
     Route: 030
  3. EVUSHELD [Concomitant]
     Active Substance: CILGAVIMAB\TIXAGEVIMAB
     Dates: start: 20220401, end: 20220401

REACTIONS (3)
  - Injection site pain [None]
  - Headache [None]
  - Rash [None]

NARRATIVE: CASE EVENT DATE: 20220401
